FAERS Safety Report 5284734-5 (Version None)
Quarter: 2007Q1

REPORT INFORMATION
  Report Type: 
  Country: None (occurrence: None)
  Receive Date: 20061226
  Receipt Date: 20060913
  Transmission Date: 20070707
  Serious: No
  Sender: FDA-Public Use
  Company Number: 2006PV021180

PATIENT
  Age: 62 Year
  Sex: Female
  Weight: 94.3482 kg

DRUGS (4)
  1. SYMLIN [Suspect]
     Indication: DRUG USE FOR UNKNOWN INDICATION
     Dosage: SEE IMAGE
     Route: 058
     Dates: start: 20060822, end: 20060101
  2. SYMLIN [Suspect]
     Indication: DRUG USE FOR UNKNOWN INDICATION
     Dosage: SEE IMAGE
     Route: 058
     Dates: start: 20060913
  3. NOVOLIN 70/30 [Concomitant]
  4. LANTUS [Concomitant]

REACTIONS (2)
  - DRUG INEFFECTIVE [None]
  - WEIGHT DECREASED [None]
